FAERS Safety Report 9646249 (Version 1)
Quarter: 2013Q4

REPORT INFORMATION
  Report Type: Spontaneous
  Country: US (occurrence: US)
  Receive Date: 20131025
  Receipt Date: 20131025
  Transmission Date: 20140711
  Serious: No
  Sender: FDA-Public Use
  Company Number: US-TEVA-440149USA

PATIENT
  Sex: Female
  Weight: 59.02 kg

DRUGS (6)
  1. AZILECT [Suspect]
     Indication: FAMILIAL TREMOR
  2. ATENOLOL [Concomitant]
     Indication: BLOOD PRESSURE ABNORMAL
     Route: 048
  3. ATENOLOL [Concomitant]
     Indication: CARDIAC DISORDER
  4. ASPIRIN [Concomitant]
     Indication: CARDIAC DISORDER
     Dosage: 81 MILLIGRAM DAILY;
  5. LASIX [Concomitant]
  6. PRAVASTATIN [Concomitant]

REACTIONS (5)
  - Decreased appetite [Not Recovered/Not Resolved]
  - Abdominal discomfort [Not Recovered/Not Resolved]
  - Nausea [Not Recovered/Not Resolved]
  - Weight decreased [Not Recovered/Not Resolved]
  - Off label use [Unknown]
